FAERS Safety Report 6266212-X (Version None)
Quarter: 2009Q3

REPORT INFORMATION
  Report Type: 
  Country: None (occurrence: None)
  Receive Date: 20090713
  Receipt Date: 20090707
  Transmission Date: 20100115
  Serious: Yes (Hospitalization)
  Sender: FDA-Public Use
  Company Number: NL-AVENTIS-200916692GDDC

PATIENT
  Age: 54 Year
  Sex: Male

DRUGS (2)
  1. AMARYL [Suspect]
     Route: 048
     Dates: start: 20080612, end: 20080701
  2. TERBINAFINE HCL [Concomitant]
     Dates: start: 20070724, end: 20080618

REACTIONS (2)
  - HEPATITIS [None]
  - MYALGIA [None]
